FAERS Safety Report 18119484 (Version 3)
Quarter: 2020Q3

REPORT INFORMATION
  Report Type: Spontaneous
  Country: US (occurrence: US)
  Receive Date: 20200806
  Receipt Date: 20200821
  Transmission Date: 20201103
  Serious: Yes (Other)
  Sender: FDA-Public Use
  Company Number: US-BAYER-2020-158503

PATIENT
  Age: 36 Year
  Sex: Female

DRUGS (1)
  1. MIRENA [Suspect]
     Active Substance: LEVONORGESTREL
     Indication: CONTRACEPTION
     Dosage: 20 ?G PER DAY CONTINUOUSLY
     Route: 015
     Dates: start: 202002, end: 20200803

REACTIONS (6)
  - Device physical property issue [None]
  - Embedded device [None]
  - Vaginal haemorrhage [None]
  - Complication of device removal [None]
  - Mood altered [None]
  - Abdominal pain lower [None]

NARRATIVE: CASE EVENT DATE: 2020
